FAERS Safety Report 4342613-1 (Version None)
Quarter: 2004Q2

REPORT INFORMATION
  Report Type: 
  Country: None (occurrence: None)
  Receive Date: 20040416
  Receipt Date: 20040402
  Transmission Date: 20050107
  Serious: Yes (Hospitalization)
  Sender: FDA-Public Use
  Company Number: 205671

PATIENT
  Age: 45 Year
  Sex: Male

DRUGS (4)
  1. RITUXAN [Suspect]
     Indication: NON-HODGKIN'S LYMPHOMA
     Dosage: 570 MG, INTRAVENOUS
     Route: 042
     Dates: start: 20011108, end: 20020115
  2. FLUDARABINE PHOSPHATE [Suspect]
     Indication: NON-HODGKIN'S LYMPHOMA
     Dosage: 42 MG, INTRAVENOUS
     Route: 042
     Dates: start: 20011022, end: 20011227
  3. MITOXANTRONE [Suspect]
     Indication: NON-HODGKIN'S LYMPHOMA
     Dosage: 14 MG, INTRAVENOUS
     Route: 042
     Dates: start: 20011022, end: 20011227
  4. DEXCHLORPHENIRAMINE MALEATE (DEXCHLORPHENIRAMINE MALEATE) [Concomitant]

REACTIONS (1)
  - VARICELLA [None]
